FAERS Safety Report 6297251-0 (Version None)
Quarter: 2009Q3

REPORT INFORMATION
  Report Type: 
  Country: None (occurrence: None)
  Receive Date: 20090805
  Receipt Date: 20070530
  Transmission Date: 20100115
  Serious: Yes (Other)
  Sender: FDA-Public Use
  Company Number: US-ASTRAZENECA-2006UW25923

PATIENT
  Age: 49 Year
  Sex: Female
  Weight: 83.9 kg

DRUGS (16)
  1. SEROQUEL [Suspect]
     Indication: DEPRESSION
     Route: 048
     Dates: start: 20040305, end: 20060228
  2. SEROQUEL [Suspect]
     Indication: BIPOLAR DISORDER
     Route: 048
     Dates: start: 20040305, end: 20060228
  3. SEROQUEL [Suspect]
     Route: 048
     Dates: start: 20050817
  4. SEROQUEL [Suspect]
     Route: 048
     Dates: start: 20050817
  5. GEODON [Suspect]
     Dates: start: 20060801
  6. GEODON [Suspect]
     Route: 048
     Dates: start: 20060724
  7. DEPAKOTE [Concomitant]
     Dates: start: 19930101
  8. DEPAKOTE [Concomitant]
     Route: 048
     Dates: start: 20041013
  9. BUPROPION HCL [Concomitant]
     Dosage: 4-JAN-2006
     Route: 048
  10. PREMARIN [Concomitant]
     Dates: start: 20041013
  11. ALDACTONE [Concomitant]
     Dates: start: 20041013
  12. ACCOLATE [Concomitant]
     Dates: start: 20041013
  13. CLONIDINE [Concomitant]
     Dates: start: 20041013
  14. NEURONTIN [Concomitant]
     Dates: start: 20041013
  15. XANAX [Concomitant]
     Dates: start: 20041013
  16. DALMANE [Concomitant]
     Dates: start: 20041013

REACTIONS (8)
  - ARTERIAL STENOSIS [None]
  - ARTERIOSCLEROSIS [None]
  - ARTHRITIS [None]
  - DIABETES MELLITUS [None]
  - FIBROMYALGIA [None]
  - INTERVERTEBRAL DISC DEGENERATION [None]
  - OSTEOARTHRITIS [None]
  - TYPE 2 DIABETES MELLITUS [None]
